FAERS Safety Report 4545748-3 (Version None)
Quarter: 2005Q1

REPORT INFORMATION
  Report Type: 
  Country: None (occurrence: None)
  Receive Date: 20050103
  Receipt Date: 20041213
  Transmission Date: 20050727
  Serious: Yes (Other)
  Sender: FDA-Public Use
  Company Number: USA041285957

PATIENT
  Age: 57 Year
  Sex: Female

DRUGS (2)
  1. HUMULIN-HUMAN INSULIN (RDNA):  25% LISPRO, 75% NPL (LI [Suspect]
     Dates: start: 20030101, end: 20030101
  2. HUMULIN N [Suspect]
     Dates: start: 19890101

REACTIONS (8)
  - BLOOD GLUCOSE INCREASED [None]
  - CATARACT [None]
  - EYE HAEMORRHAGE [None]
  - FACE OEDEMA [None]
  - GLAUCOMA [None]
  - INSOMNIA [None]
  - PHARMACEUTICAL PRODUCT COMPLAINT [None]
  - SWELLING [None]
